FAERS Safety Report 12291608 (Version 1)
Quarter: 2016Q2

REPORT INFORMATION
  Report Type: Report from Study
  Country: US (occurrence: US)
  Receive Date: 20160421
  Receipt Date: 20160421
  Transmission Date: 20160815
  Serious: No
  Sender: FDA-Public Use
  Company Number: US-AMGEN-USASL2016026373

PATIENT
  Age: 72 Year
  Sex: Female

DRUGS (1)
  1. REPATHA [Suspect]
     Active Substance: EVOLOCUMAB
     Indication: PRODUCT USED FOR UNKNOWN INDICATION
     Dosage: 140 MG, UNK
     Route: 065
     Dates: start: 20160125

REACTIONS (13)
  - Glossodynia [Unknown]
  - Chills [Unknown]
  - Glossitis [Unknown]
  - Burning sensation [Unknown]
  - Influenza [Not Recovered/Not Resolved]
  - Anxiety [Unknown]
  - Dyspnoea [Unknown]
  - Paraesthesia [Unknown]
  - Rash [Unknown]
  - Oropharyngeal pain [Unknown]
  - Hypoaesthesia [Unknown]
  - Headache [Unknown]
  - Back pain [Unknown]

NARRATIVE: CASE EVENT DATE: 20160129
